FAERS Safety Report 7991421-9 (Version None)
Quarter: 2011Q4

REPORT INFORMATION
  Report Type: 
  Country: None (occurrence: None)
  Receive Date: 20111219
  Receipt Date: 20111215
  Transmission Date: 20120403
  Serious: Yes (Death)
  Sender: FDA-Public Use
  Company Number: NO-ABBOTT-11P-122-0857716-00

PATIENT
  Sex: Female

DRUGS (4)
  1. HUMALOG [Concomitant]
     Indication: DIABETES MELLITUS
     Route: 058
  2. HUMIRA [Suspect]
     Indication: RHEUMATOID ARTHRITIS
     Route: 058
     Dates: start: 20050316, end: 20060306
  3. ENBREL [Suspect]
     Indication: RHEUMATOID ARTHRITIS
     Route: 058
     Dates: start: 20010423, end: 20050316
  4. METHOTREXATE [Concomitant]
     Indication: RHEUMATOID ARTHRITIS
     Route: 048
     Dates: start: 20010423, end: 20060606

REACTIONS (1)
  - SALIVARY GLAND CANCER [None]
